FAERS Safety Report 17376598 (Version 2)
Quarter: 2020Q1

REPORT INFORMATION
  Report Type: Report from Study
  Country: CA (occurrence: CA)
  Receive Date: 20200206
  Receipt Date: 20200220
  Transmission Date: 20200409
  Serious: Yes (Other)
  Sender: FDA-Public Use
  Company Number: CA-JNJFOC-20200101907

PATIENT
  Age: 26 Year
  Sex: Female
  Weight: 128 kg

DRUGS (6)
  1. FLUOXETINE [Concomitant]
     Active Substance: FLUOXETINE HYDROCHLORIDE
     Indication: ANXIETY
     Route: 048
  2. FERROUS SULFATE. [Concomitant]
     Active Substance: FERROUS SULFATE
     Indication: PRODUCT USED FOR UNKNOWN INDICATION
     Route: 048
  3. FLOVENT [Concomitant]
     Active Substance: FLUTICASONE PROPIONATE
     Indication: HYPERSENSITIVITY
     Route: 055
  4. CANNABIDIOL [Concomitant]
     Active Substance: CANNABIDIOL
     Indication: ANXIETY
     Dosage: CBD OIL
     Route: 048
  5. REMICADE [Suspect]
     Active Substance: INFLIXIMAB
     Indication: CROHN^S DISEASE
     Dosage: THE PATIENT RECEIVED 40 TH 500 MG REMICADE INFUSION
     Route: 042
     Dates: start: 20160920
  6. VENTOLIN [Concomitant]
     Active Substance: ALBUTEROL SULFATE
     Indication: HYPERSENSITIVITY
     Dosage: VENTOLIN INHALER
     Route: 055

REACTIONS (12)
  - Cough [Recovering/Resolving]
  - Respiratory tract congestion [Recovering/Resolving]
  - Ear pain [Unknown]
  - Oral herpes [Recovering/Resolving]
  - Pain [Recovering/Resolving]
  - Headache [Unknown]
  - General physical health deterioration [Unknown]
  - Cellulitis [Recovered/Resolved]
  - Chest discomfort [Unknown]
  - Frequent bowel movements [Recovered/Resolved]
  - Ear discomfort [Unknown]
  - Diarrhoea [Recovered/Resolved]

NARRATIVE: CASE EVENT DATE: 20200206
